FAERS Safety Report 7043356-6 (Version None)
Quarter: 2010Q3

REPORT INFORMATION
  Report Type: 
  Country: None (occurrence: None)
  Receive Date: 20100929
  Receipt Date: 20100726
  Transmission Date: 20110219
  Serious: No
  Sender: FDA-Public Use
  Company Number: US-WYE-H16684810

PATIENT
  Age: 71 Year
  Sex: Female
  Weight: 51.76 kg

DRUGS (3)
  1. PRISTIQ [Suspect]
     Indication: DEPRESSION
     Dosage: 50 MG, 1X PER 1 DAY
     Dates: start: 20100724
  2. RANITIDINE [Concomitant]
  3. ACIPHEX [Concomitant]

REACTIONS (5)
  - INSOMNIA [None]
  - INTENTIONAL DRUG MISUSE [None]
  - NAUSEA [None]
  - RESTLESSNESS [None]
  - WRONG TECHNIQUE IN DRUG USAGE PROCESS [None]
